FAERS Safety Report 10529153 (Version 2)
Quarter: 2015Q2

REPORT INFORMATION
  Report Type: Report from Study
  Country: US (occurrence: US)
  Receive Date: 20141020
  Receipt Date: 20150504
  Transmission Date: 20150821
  Serious: Yes (Hospitalization)
  Sender: FDA-Public Use
  Company Number: US-GILEAD-2014-0119102

PATIENT
  Age: 74 Year
  Sex: Male

DRUGS (14)
  1. LANTUS [Concomitant]
     Active Substance: INSULIN GLARGINE
  2. PREDNISONE. [Concomitant]
     Active Substance: PREDNISONE
  3. SPIRIVA [Concomitant]
     Active Substance: TIOTROPIUM BROMIDE MONOHYDRATE
  4. AMBRISENTAN [Suspect]
     Active Substance: AMBRISENTAN
     Indication: PULMONARY ARTERIAL HYPERTENSION
     Dosage: 10 MG, QD
     Route: 065
     Dates: start: 20120409
  5. TYVASO [Concomitant]
     Active Substance: TREPROSTINIL
  6. ECONAZOLE [Concomitant]
     Active Substance: ECONAZOLE
  7. ACCUPRIL [Concomitant]
     Active Substance: QUINAPRIL HYDROCHLORIDE
  8. AMOXICILLIN. [Concomitant]
     Active Substance: AMOXICILLIN
  9. ALBUTEROL                          /00139501/ [Concomitant]
     Active Substance: ALBUTEROL
  10. ADCIRCA [Concomitant]
     Active Substance: TADALAFIL
  11. QVAR [Concomitant]
     Active Substance: BECLOMETHASONE DIPROPIONATE
  12. LASIX [Concomitant]
     Active Substance: FUROSEMIDE
  13. POTASSIUM [Concomitant]
     Active Substance: POTASSIUM
  14. SIMVASTATIN. [Concomitant]
     Active Substance: SIMVASTATIN

REACTIONS (1)
  - Haemorrhage [Recovered/Resolved]

NARRATIVE: CASE EVENT DATE: 20141004
